FAERS Safety Report 24688994 (Version 5)
Quarter: 2025Q1

REPORT INFORMATION
  Report Type: Report from Study
  Country: JP (occurrence: JP)
  Receive Date: 20241203
  Receipt Date: 20250226
  Transmission Date: 20250409
  Serious: Yes (Death, Hospitalization)
  Sender: INSMED
  Company Number: JP-INSMED, INC.-2024-04744-JP

PATIENT
  Age: 80 Year
  Sex: Female

DRUGS (1)
  1. ARIKAYCE [Suspect]
     Active Substance: AMIKACIN
     Indication: Mycobacterium avium complex infection
     Route: 055
     Dates: start: 20241023, end: 20250106

REACTIONS (3)
  - Death [Fatal]
  - Physical deconditioning [Unknown]
  - Mental disorder [Unknown]

NARRATIVE: CASE EVENT DATE: 20250106
